FAERS Safety Report 4373159-2 (Version None)
Quarter: 2004Q2

REPORT INFORMATION
  Report Type: 
  Country: None (occurrence: None)
  Receive Date: 20040603
  Receipt Date: 20040518
  Transmission Date: 20050107
  Serious: Yes (Hospitalization)
  Sender: FDA-Public Use
  Company Number: 195921

PATIENT
  Age: 51 Year
  Sex: Female
  Weight: 54.4316 kg

DRUGS (1)
  1. AVONEX [Suspect]
     Indication: MULTIPLE SCLEROSIS
     Dosage: UNK
     Route: 065
     Dates: start: 19980101, end: 20021201

REACTIONS (9)
  - APPENDICITIS [None]
  - BENIGN MESOTHELIOMA [None]
  - CONDITION AGGRAVATED [None]
  - CYST [None]
  - DEPRESSION [None]
  - INFLUENZA LIKE ILLNESS [None]
  - MULTIPLE SCLEROSIS [None]
  - PAIN [None]
  - PNEUMONIA [None]
